FAERS Safety Report 15565791 (Version 1)
Quarter: 2018Q4

REPORT INFORMATION
  Report Type: Spontaneous
  Country: US (occurrence: US)
  Receive Date: 20181025
  Receipt Date: 20181025
  Transmission Date: 20190205
  Serious: Yes (Death)
  Sender: FDA-Public Use
  Company Number: None

PATIENT
  Age: 45 Year
  Sex: Male
  Weight: 101 kg

DRUGS (3)
  1. LAMICTAL [Suspect]
     Active Substance: LAMOTRIGINE
     Indication: BIPOLAR DISORDER
     Route: 048
     Dates: start: 20180917, end: 20181001
  2. TYLENOL [Concomitant]
     Active Substance: ACETAMINOPHEN
  3. AZITHROMYCIN ANHYDROUS. [Concomitant]
     Active Substance: AZITHROMYCIN ANHYDROUS

REACTIONS (5)
  - Renal failure [None]
  - Hepatic failure [None]
  - Haemophagocytic lymphohistiocytosis [None]
  - Pancytopenia [None]
  - Gastrointestinal necrosis [None]

NARRATIVE: CASE EVENT DATE: 20181017
